FAERS Safety Report 8920141 (Version 1)
Quarter: 2012Q4

REPORT INFORMATION
  Report Type: Report from Study
  Country: LB (occurrence: LB)
  Receive Date: 20121122
  Receipt Date: 20121122
  Transmission Date: 20130627
  Serious: Yes (Death, Hospitalization, Other)
  Sender: FDA-Public Use
  Company Number: LB-ROCHE-1154158

PATIENT
  Age: 80 Year
  Sex: Female
  Weight: 80 kg

DRUGS (9)
  1. BEVACIZUMAB [Suspect]
     Indication: COLORECTAL CANCER METASTATIC
     Route: 042
     Dates: start: 20120815, end: 20120919
  2. OXALIPLATIN [Suspect]
     Indication: COLORECTAL CANCER METASTATIC
     Route: 042
     Dates: start: 20120815, end: 20120919
  3. CONCOR [Concomitant]
     Indication: HYPERTENSION
     Route: 048
  4. LASIX [Concomitant]
     Indication: FLUID RETENTION
     Route: 048
  5. SINTROM [Concomitant]
     Route: 048
  6. CALTRATE PLUS [Concomitant]
     Route: 048
  7. PARIET [Concomitant]
     Route: 048
  8. ALBUMINE [Concomitant]
     Route: 042
  9. PERFALGAN [Concomitant]
     Indication: PAIN
     Route: 042

REACTIONS (3)
  - Septic shock [Fatal]
  - Diarrhoea [Not Recovered/Not Resolved]
  - Pleural effusion [Unknown]
